FAERS Safety Report 24417640 (Version 1)
Quarter: 2024Q4

REPORT INFORMATION
  Report Type: Spontaneous
  Country: US (occurrence: None)
  Receive Date: 20241009
  Receipt Date: 20241009
  Transmission Date: 20250115
  Serious: No
  Sender: Public
  Company Number: None

PATIENT
  Age: 55 Year
  Sex: Female

DRUGS (5)
  1. OTEZLA [Suspect]
     Active Substance: APREMILAST
     Indication: Immunoglobulins abnormal
     Dates: start: 202404
  2. GABAPENTIN [Suspect]
  3. OLMESARTAN MEDOXOMIL [Suspect]
     Active Substance: OLMESARTAN MEDOXOMIL
  4. PANTOPRAZOLE SODIUM [Suspect]
  5. SUCRALFATE [Suspect]
     Dosage: FREQUENCY : TWICE A DAY;?
     Route: 038
     Dates: start: 202404

REACTIONS (2)
  - Spinal operation [None]
  - Therapy cessation [None]
